FAERS Safety Report 10993306 (Version 2)
Quarter: 2015Q2

REPORT INFORMATION
  Report Type: Spontaneous
  Country: US (occurrence: US)
  Receive Date: 20150407
  Receipt Date: 20150511
  Transmission Date: 20150821
  Serious: No
  Sender: FDA-Public Use
  Company Number: US-ASTRAZENECA-2015SE30019

PATIENT
  Age: 769 Month
  Sex: Male
  Weight: 104.3 kg

DRUGS (1)
  1. SYMBICORT [Suspect]
     Active Substance: BUDESONIDE\FORMOTEROL FUMARATE DIHYDRATE
     Dosage: 160/4.5 UG, 1 PUFF BID
     Route: 055
     Dates: start: 201412

REACTIONS (7)
  - Lower respiratory tract infection [Unknown]
  - Dyspnoea [Unknown]
  - Cough [Unknown]
  - Condition aggravated [Unknown]
  - Adverse drug reaction [Unknown]
  - Bronchitis [Unknown]
  - Off label use [Unknown]

NARRATIVE: CASE EVENT DATE: 201412
